FAERS Safety Report 10688076 (Version 4)
Quarter: 2015Q1

REPORT INFORMATION
  Report Type: Report from Study
  Country: US (occurrence: US)
  Receive Date: 20150102
  Receipt Date: 20150311
  Transmission Date: 20150720
  Serious: Yes (Hospitalization)
  Sender: FDA-Public Use
  Company Number: US-SA-2014SA049505

PATIENT
  Age: 41 Year
  Sex: Female

DRUGS (1)
  1. AUBAGIO [Suspect]
     Active Substance: TERIFLUNOMIDE
     Indication: MULTIPLE SCLEROSIS
     Route: 048
     Dates: start: 20140409, end: 20141231

REACTIONS (7)
  - Pneumonia [Recovering/Resolving]
  - Multiple sclerosis [Unknown]
  - Multiple sclerosis relapse [Unknown]
  - Paraesthesia [Not Recovered/Not Resolved]
  - Alopecia [Not Recovered/Not Resolved]
  - Hypoaesthesia [Not Recovered/Not Resolved]
  - Balance disorder [Not Recovered/Not Resolved]

NARRATIVE: CASE EVENT DATE: 2014
